FAERS Safety Report 19389552 (Version 1)
Quarter: 2021Q2

REPORT INFORMATION
  Report Type: Spontaneous
  Country: CN (occurrence: CN)
  Receive Date: 20210608
  Receipt Date: 20210608
  Transmission Date: 20210717
  Serious: Yes (Other)
  Sender: FDA-Public Use
  Company Number: CN-SA-2021SA183079

PATIENT
  Age: 26 Year
  Weight: 42 kg

DRUGS (1)
  1. STILNOX [Suspect]
     Active Substance: ZOLPIDEM TARTRATE
     Indication: INSOMNIA
     Dosage: 1 DF
     Dates: start: 20210526

REACTIONS (8)
  - Vomiting [Unknown]
  - Aggression [Recovered/Resolved]
  - Intentional self-injury [Recovered/Resolved]
  - Somnolence [Recovered/Resolved]
  - Product use issue [Unknown]
  - Irritability [Recovered/Resolved]
  - Nausea [Unknown]
  - Amnesia [Unknown]

NARRATIVE: CASE EVENT DATE: 20210526
